FAERS Safety Report 8866523 (Version 1)
Quarter: 2012Q4

REPORT INFORMATION
  Report Type: Report from Study
  Country: US (occurrence: US)
  Receive Date: 20121025
  Receipt Date: 20121025
  Transmission Date: 20130627
  Serious: No
  Sender: FDA-Public Use
  Company Number: US-ABBOTT-11P-163-0875585-00

PATIENT
  Age: 49 Year
  Sex: Female
  Weight: 53.57 kg

DRUGS (3)
  1. LUPRON DEPOT 3.75 MG [Suspect]
     Indication: UTERINE LEIOMYOMA
     Dosage: 1 injection only received.
     Route: 050
     Dates: start: 20111011, end: 20111011
  2. UNKNOWN MEDICATION [Concomitant]
     Indication: HYPERTENSION
  3. UNKNOWN THYROID MEDICATION [Concomitant]
     Indication: THYROID DISORDER

REACTIONS (4)
  - Asthenia [Recovered/Resolved]
  - Fatigue [Recovered/Resolved]
  - Menstruation irregular [Recovered/Resolved]
  - Disturbance in attention [Recovered/Resolved]
